FAERS Safety Report 8933970 (Version 1)
Quarter: 2012Q4

REPORT INFORMATION
  Report Type: 
  Country: GB (occurrence: GB)
  Receive Date: 20121129
  Receipt Date: 20121129
  Transmission Date: 20130627
  Serious: Yes (Hospitalization)
  Sender: FDA-Public Use
  Company Number: GB-TEVA-371941ISR

PATIENT
  Age: 51 Year
  Sex: Female

DRUGS (7)
  1. TRAMADOL [Suspect]
     Indication: PAIN
     Dosage: 400 Milligram Daily;
     Route: 048
     Dates: start: 20121031, end: 20121107
  2. DIHYDROCODEINE [Suspect]
     Indication: PAIN
     Dosage: 120 Milligram Daily;
     Route: 048
  3. LOSARTAN [Concomitant]
     Indication: HYPERTENSION
     Route: 048
  4. BISOPROLOL [Concomitant]
     Indication: HYPERTENSION
     Route: 048
  5. ATORVASTATIN [Concomitant]
     Indication: BLOOD CHOLESTEROL INCREASED
     Route: 048
  6. DIURETIC [Concomitant]
  7. ASPIRIN [Concomitant]

REACTIONS (2)
  - Ataxia [Recovering/Resolving]
  - Somnolence [Recovering/Resolving]
